FAERS Safety Report 10980416 (Version 2)
Quarter: 2015Q2

REPORT INFORMATION
  Report Type: Spontaneous
  Country: US (occurrence: US)
  Receive Date: 20150402
  Receipt Date: 20150525
  Transmission Date: 20150821
  Serious: No
  Sender: FDA-Public Use
  Company Number: US-JNJFOC-20140601963

PATIENT
  Age: 76 Year
  Sex: Female
  Weight: 60.78 kg

DRUGS (2)
  1. IMODIUM MULTI-SYMPTOM RELIEF [Suspect]
     Active Substance: DIMETHICONE\LOPERAMIDE HYDROCHLORIDE
     Route: 048
  2. IMODIUM MULTI-SYMPTOM RELIEF [Suspect]
     Active Substance: DIMETHICONE\LOPERAMIDE HYDROCHLORIDE
     Indication: ENTEROCOLITIS
     Dosage: 1 TO 4
     Route: 048

REACTIONS (3)
  - Product use issue [Unknown]
  - Wrong technique in drug usage process [Unknown]
  - Aphagia [Unknown]
